FAERS Safety Report 6775094-9 (Version None)
Quarter: 2010Q2

REPORT INFORMATION
  Report Type: 
  Country: None (occurrence: None)
  Receive Date: 20100617
  Receipt Date: 20100609
  Transmission Date: 20101027
  Serious: Yes (Death)
  Sender: FDA-Public Use
  Company Number: B0660839A

PATIENT
  Sex: Female
  Weight: 68 kg

DRUGS (7)
  1. ARIXTRA [Suspect]
     Dosage: 2.5MG PER DAY
     Route: 058
     Dates: start: 20100601, end: 20100602
  2. ASPIRIN [Suspect]
     Dosage: 100MG PER DAY
     Route: 048
     Dates: start: 20100526, end: 20100602
  3. NEXIUM [Concomitant]
     Dosage: 20MG PER DAY
     Route: 048
  4. EXFORGE [Concomitant]
     Route: 048
  5. MAGNESIOCARD [Concomitant]
     Dosage: 15MG PER DAY
     Route: 048
  6. AUGMENTIN '125' [Concomitant]
     Dosage: 1875MG PER DAY
     Route: 048
     Dates: start: 20100528
  7. VOLTAREN [Concomitant]
     Indication: PAIN
     Dosage: 100MG PER DAY
     Route: 048
     Dates: start: 20100531

REACTIONS (4)
  - CEREBRAL HAEMORRHAGE [None]
  - CONTUSION [None]
  - FALL [None]
  - INTRACRANIAL PRESSURE INCREASED [None]
